FAERS Safety Report 5075832-X (Version None)
Quarter: 2006Q3

REPORT INFORMATION
  Report Type: 
  Country: None (occurrence: None)
  Receive Date: 20060807
  Receipt Date: 20060807
  Transmission Date: 20061208
  Serious: Yes (Other)
  Sender: FDA-Public Use
  Company Number: None

PATIENT
  Age: 30 Year
  Sex: Female

DRUGS (1)
  1. AVIANE-21 [Suspect]
     Indication: ORAL CONTRACEPTION
     Dosage: 1 DAILY

REACTIONS (1)
  - PREGNANCY [None]
